FAERS Safety Report 7007013-4 (Version None)
Quarter: 2010Q3

REPORT INFORMATION
  Report Type: 
  Country: None (occurrence: None)
  Receive Date: 20100915
  Receipt Date: 20100903
  Transmission Date: 20110219
  Serious: Yes (Life-Threatening, Hospitalization, Other)
  Sender: FDA-Public Use
  Company Number: 2010SP048044

PATIENT
  Sex: Female

DRUGS (2)
  1. PEG-INTRON [Suspect]
     Indication: HEPATITIS C
     Dates: start: 20100219
  2. RIBAVIRIN [Suspect]
     Indication: HEPATITIS C
     Dates: start: 20100219

REACTIONS (8)
  - DEPRESSION [None]
  - DYSGEUSIA [None]
  - DYSSTASIA [None]
  - FINGER DEFORMITY [None]
  - IMMOBILE [None]
  - MUSCLE ATROPHY [None]
  - ORAL DISCOMFORT [None]
  - PNEUMONIA [None]
